FAERS Safety Report 12922957 (Version 2)
Quarter: 2016Q4

REPORT INFORMATION
  Report Type: Spontaneous
  Country: CH (occurrence: CH)
  Receive Date: 20161109
  Receipt Date: 20161109
  Transmission Date: 20170207
  Serious: Yes (Hospitalization)
  Sender: FDA-Public Use
  Company Number: CH-PFIZER INC-2016500265

PATIENT
  Age: 2 Year
  Sex: Male
  Weight: 13 kg

DRUGS (2)
  1. TENORMIN [Suspect]
     Active Substance: ATENOLOL
     Dosage: 1 DF (INTAKE OF 1 TABLET OF 100 MG)
     Route: 048
     Dates: start: 20161008, end: 20161008
  2. TEMESTA [Suspect]
     Active Substance: LORAZEPAM
     Dosage: 2 DF (INTAKE OF 2 TABLETS OF 1 MG)
     Route: 048
     Dates: start: 20161008, end: 20161008

REACTIONS (5)
  - Dysarthria [Recovered/Resolved]
  - Psychomotor hyperactivity [Recovered/Resolved]
  - Heart rate increased [Recovered/Resolved]
  - Accidental exposure to product by child [Recovered/Resolved]
  - Ataxia [Recovered/Resolved]

NARRATIVE: CASE EVENT DATE: 20161008
